FAERS Safety Report 26026944 (Version 1)
Quarter: 2025Q4

REPORT INFORMATION
  Report Type: Spontaneous
  Country: EU (occurrence: EU)
  Receive Date: 20251111
  Receipt Date: 20251111
  Transmission Date: 20260117
  Serious: Yes (Death)
  Sender: NOVARTIS
  Company Number: EU-002147023-NVSC2025SI173379

PATIENT

DRUGS (1)
  1. NILOTINIB [Suspect]
     Active Substance: NILOTINIB
     Indication: Chronic myeloid leukaemia
     Dosage: UNK
     Route: 065

REACTIONS (7)
  - Cardiac failure [Fatal]
  - Cerebrovascular accident [Fatal]
  - Pneumonia [Fatal]
  - COVID-19 [Fatal]
  - Cellulitis [Fatal]
  - Liver disorder [Fatal]
  - Post procedural complication [Fatal]
